FAERS Safety Report 22620179 (Version 2)
Quarter: 2023Q2

REPORT INFORMATION
  Report Type: Spontaneous
  Country: DO (occurrence: DO)
  Receive Date: 20230620
  Receipt Date: 20230621
  Transmission Date: 20230721
  Serious: Yes (Other)
  Sender: FDA-Public Use
  Company Number: DO-009507513-2306DOM007347

PATIENT
  Age: 27 Year
  Sex: Female

DRUGS (1)
  1. KEYTRUDA [Suspect]
     Active Substance: PEMBROLIZUMAB
     Indication: Hodgkin^s disease
     Dosage: UNK, CYCLICAL

REACTIONS (2)
  - Splenomegaly [Not Recovered/Not Resolved]
  - Anaemia [Not Recovered/Not Resolved]
